FAERS Safety Report 8157203-2 (Version None)
Quarter: 2012Q1

REPORT INFORMATION
  Report Type: 
  Country: None (occurrence: None)
  Receive Date: 20120222
  Receipt Date: 20120215
  Transmission Date: 20120608
  Serious: Yes (Hospitalization)
  Sender: FDA-Public Use
  Company Number: US-INCYTE CORPORATION-2012IN000202

PATIENT
  Sex: Female

DRUGS (7)
  1. TOPROL-XL [Concomitant]
  2. LASIX [Concomitant]
     Dosage: 20 MG, QD
  3. SYNTHROID [Concomitant]
     Dosage: 100 MCG, QD
  4. CHROMACAPS [Concomitant]
  5. JAKAFI [Suspect]
     Indication: MYELOFIBROSIS
     Dosage: 20 MG, BID
     Route: 048
     Dates: start: 20111208, end: 20120124
  6. CADUET [Concomitant]
     Dosage: UNK, QD
  7. CELEXA [Concomitant]
     Dosage: 20 MG, QD

REACTIONS (2)
  - HAEMOGLOBIN DECREASED [None]
  - DYSPNOEA [None]
